FAERS Safety Report 6435091-X (Version None)
Quarter: 2009Q4

REPORT INFORMATION
  Report Type: 
  Country: None (occurrence: None)
  Receive Date: 20091110
  Receipt Date: 20091028
  Transmission Date: 20100525
  Serious: Yes (Hospitalization)
  Sender: FDA-Public Use
  Company Number: GB-PFIZER INC-2007037085

PATIENT
  Age: 45 Year
  Sex: Female
  Weight: 57 kg

DRUGS (9)
  1. SUNITINIB MALATE [Suspect]
     Indication: RENAL CELL CARCINOMA
     Dosage: 50 MG, 1X/DAY
     Route: 048
     Dates: start: 20060705
  2. LANSOPRAZOLE [Concomitant]
     Route: 048
     Dates: start: 20070201
  3. FERROUS SULFATE TAB [Concomitant]
     Route: 048
     Dates: start: 20070414
  4. LEVOTHYROXINE SODIUM [Concomitant]
     Route: 048
     Dates: start: 20070509
  5. BONJELA [Concomitant]
     Route: 061
     Dates: start: 20070201
  6. PARACETAMOL [Concomitant]
     Route: 048
     Dates: start: 20061212
  7. LOPERAMIDE [Concomitant]
     Route: 048
     Dates: start: 20060802
  8. ORAMORPH SR [Concomitant]
     Route: 048
     Dates: start: 20060802
  9. NULYTELY [Concomitant]
     Route: 048
     Dates: start: 20040930

REACTIONS (2)
  - ANAEMIA [None]
  - HYPERCALCAEMIA [None]
